FAERS Safety Report 24010133 (Version 1)
Quarter: 2024Q2

REPORT INFORMATION
  Report Type: Spontaneous
  Country: GB (occurrence: GB)
  Receive Date: 20240625
  Receipt Date: 20240625
  Transmission Date: 20240715
  Serious: Yes (Other)
  Sender: FDA-Public Use
  Company Number: GB-MYLANLABS-2024M1057062

PATIENT
  Age: 12 Year
  Sex: Female

DRUGS (2)
  1. LUSTRAL [Suspect]
     Active Substance: SERTRALINE HYDROCHLORIDE
     Indication: Anxiety
     Dosage: 25 MILLIGRAM, QD
     Route: 065
     Dates: start: 20240208
  2. RISPERIDONE [Concomitant]
     Active Substance: RISPERIDONE
     Dosage: UNK
     Route: 065

REACTIONS (5)
  - Syncope [Unknown]
  - Blood glucose decreased [Not Recovered/Not Resolved]
  - Dizziness [Unknown]
  - Dyspnoea [Unknown]
  - Hypersensitivity [Unknown]

NARRATIVE: CASE EVENT DATE: 20240228
